FAERS Safety Report 7277714-1 (Version None)
Quarter: 2011Q1

REPORT INFORMATION
  Report Type: 
  Country: None (occurrence: None)
  Receive Date: 20110207
  Receipt Date: 20110127
  Transmission Date: 20110831
  Serious: Yes (Hospitalization)
  Sender: FDA-Public Use
  Company Number: US-JNJFOC-20110200206

PATIENT
  Sex: Female

DRUGS (2)
  1. MOTRIN IB [Suspect]
     Indication: PRODUCT USED FOR UNKNOWN INDICATION
     Route: 065
  2. MOTRIN IB [Suspect]
     Route: 065

REACTIONS (3)
  - PRESYNCOPE [None]
  - HEPATIC ENZYME INCREASED [None]
  - ISCHAEMIA [None]
